FAERS Safety Report 12675452 (Version 1)
Quarter: 2016Q3

REPORT INFORMATION
  Report Type: Other
  Country: US (occurrence: US)
  Receive Date: 20160823
  Receipt Date: 20160823
  Transmission Date: 20161109
  Serious: Yes (Hospitalization)
  Sender: FDA-Public Use
  Company Number: US-HETERO LABS LTD-1056642

PATIENT
  Age: 17 Year
  Sex: Female

DRUGS (5)
  1. LITHIUM. [Suspect]
     Active Substance: LITHIUM
     Indication: BIPOLAR DISORDER
     Route: 065
  2. CINACALCET [Concomitant]
     Active Substance: CINACALCET
  3. FUROSEMIDE. [Concomitant]
     Active Substance: FUROSEMIDE
  4. CALCITONIN SALMON. [Concomitant]
     Active Substance: CALCITONIN SALMON
  5. ZOLEDRONIC ACID [Concomitant]
     Active Substance: ZOLEDRONIC ACID

REACTIONS (1)
  - Hyperparathyroidism [Recovered/Resolved]
